FAERS Safety Report 15569480 (Version 3)
Quarter: 2019Q3

REPORT INFORMATION
  Report Type: Report from Study
  Country: US (occurrence: US)
  Receive Date: 20181031
  Receipt Date: 20190918
  Transmission Date: 20191004
  Serious: Yes (Hospitalization)
  Sender: FDA-Public Use
  Company Number: US-ROCHE-2203235

PATIENT
  Age: 61 Year
  Sex: Female
  Weight: 79 kg

DRUGS (4)
  1. CARBOPLATIN. [Suspect]
     Active Substance: CARBOPLATIN
     Indication: TRIPLE NEGATIVE BREAST CANCER
     Dosage: DATE OF LAST DOSE OF A PRIOR TO SERIOUS ADVERSE EVENT (SAE): 18/SEP/2018?AUC 6
     Route: 042
     Dates: start: 20180803, end: 20180918
  2. ATIVAN [Concomitant]
     Active Substance: LORAZEPAM
     Indication: ANXIETY
  3. CODEINE [Concomitant]
     Active Substance: CODEINE
     Indication: PAIN
     Route: 065
     Dates: start: 20181008
  4. ATEZOLIZUMAB. [Suspect]
     Active Substance: ATEZOLIZUMAB
     Indication: TRIPLE NEGATIVE BREAST CANCER
     Dosage: DATE OF LAST DOSE OF A PRIOR TO SERIOUS ADVERSE EVENT (SAE): 18/SEP/2018
     Route: 042
     Dates: start: 20180824, end: 20180918

REACTIONS (1)
  - Haemoptysis [Recovering/Resolving]

NARRATIVE: CASE EVENT DATE: 20181008
